FAERS Safety Report 11055415 (Version 2)
Quarter: 2015Q2

REPORT INFORMATION
  Report Type: Report from Study
  Country: US (occurrence: US)
  Receive Date: 20150422
  Receipt Date: 20150513
  Transmission Date: 20150821
  Serious: Yes (Hospitalization, Other)
  Sender: FDA-Public Use
  Company Number: US-SA-2014SA124806

PATIENT
  Age: 54 Year
  Sex: Female

DRUGS (7)
  1. AUBAGIO [Suspect]
     Active Substance: TERIFLUNOMIDE
     Indication: MULTIPLE SCLEROSIS
     Route: 048
     Dates: start: 20140901, end: 20140919
  2. BACLOFEN. [Concomitant]
     Active Substance: BACLOFEN
     Dosage: DOSE: 20 MG AM, 10 MG (NOON), 20 MG AT BEDTIME.
  3. ESTRADIOL. [Interacting]
     Active Substance: ESTRADIOL
     Indication: HORMONE REPLACEMENT THERAPY
     Route: 065
  4. ESTRADIOL. [Interacting]
     Active Substance: ESTRADIOL
     Indication: HORMONE REPLACEMENT THERAPY
     Route: 065
     Dates: start: 20141223
  5. GABAPENTIN. [Concomitant]
     Active Substance: GABAPENTIN
  6. BRINTELLIX [Concomitant]
     Active Substance: VORTIOXETINE HYDROBROMIDE
     Indication: DEPRESSION
     Dosage: 10 MG PER DAY, TITRATED TO 20 MG
  7. AUBAGIO [Interacting]
     Active Substance: TERIFLUNOMIDE
     Indication: MULTIPLE SCLEROSIS
     Route: 048

REACTIONS (29)
  - Pyrexia [Unknown]
  - Arthralgia [Unknown]
  - Depression [Not Recovered/Not Resolved]
  - Weight decreased [Not Recovered/Not Resolved]
  - Muscular weakness [Unknown]
  - Unevaluable event [Unknown]
  - Pain [Unknown]
  - Decreased appetite [Not Recovered/Not Resolved]
  - Asthenia [Unknown]
  - Anxiety [Unknown]
  - Nausea [Unknown]
  - Cough [Unknown]
  - Osteoarthritis [Unknown]
  - Anger [Not Recovered/Not Resolved]
  - Nasopharyngitis [Unknown]
  - Skin mass [Unknown]
  - Pruritus [Unknown]
  - Chest discomfort [Unknown]
  - Frustration [Unknown]
  - Crying [Unknown]
  - Poor quality sleep [Unknown]
  - Fatigue [Unknown]
  - Rash [Unknown]
  - Headache [Unknown]
  - Suicidal ideation [Unknown]
  - Hot flush [Unknown]
  - Drug interaction [Unknown]
  - Gait disturbance [Unknown]
  - Alopecia [Unknown]
